FAERS Safety Report 10283698 (Version 2)
Quarter: 2014Q1

REPORT INFORMATION
  Report Type: Spontaneous
  Country: US (occurrence: None)
  Receive Date: 20120709
  Receipt Date: 20130724
  Transmission Date: 20141002
  Serious: Yes (Other)
  Sender: FDA-Public Use
  Company Number: PHHY2011US24648

PATIENT
  Age: 53 Year
  Sex: Female
  Weight: 155 kg

DRUGS (4)
  1. GLEEVEC (IMATINIB) [Suspect]
     Indication: BRAIN NEOPLASM MALIGNANT
     Route: 048
     Dates: start: 201103, end: 20110424
  2. AVASTIN (BEVACIZUMAB) [Suspect]
     Indication: BRAIN NEOPLASM MALIGNANT
     Dosage: QW2, INTRAVENOUS
     Route: 042
     Dates: start: 201103, end: 201104
  3. HYDROXYUREA (HYDROXYCARBAMIDE) [Suspect]
     Indication: BRAIN NEOPLASM MALIGNANT
     Dates: start: 201103, end: 201104
  4. VP-16 (ETOPOSIDE) [Concomitant]

REACTIONS (9)
  - Thrombocytopenia [None]
  - White blood cell count decreased [None]
  - Epistaxis [None]
  - Fatigue [None]
  - Diarrhoea [None]
  - Vomiting [None]
  - Constipation [None]
  - Brain neoplasm malignant [None]
  - Malignant neoplasm progression [None]
